FAERS Safety Report 16658931 (Version 1)
Quarter: 2019Q3

REPORT INFORMATION
  Report Type: Spontaneous
  Country: JP (occurrence: JP)
  Receive Date: 20190801
  Receipt Date: 20190801
  Transmission Date: 20191004
  Serious: Yes (Other)
  Sender: FDA-Public Use
  Company Number: JP-TAKEDA-2019TJP017261AA

PATIENT
  Age: 76 Year
  Sex: Female
  Weight: 57.1 kg

DRUGS (10)
  1. LIXIANA [Concomitant]
     Active Substance: EDOXABAN TOSYLATE
     Dosage: 15 MILLIGRAM, QD
     Route: 065
     Dates: start: 20190703, end: 20190716
  2. PARACETAMOL W/TRAMADOL HYDROCHLORIDE [Concomitant]
     Active Substance: ACETAMINOPHEN\TRAMADOL HYDROCHLORIDE
     Dosage: 2 DOSAGE FORM, BID
     Route: 065
  3. BONALON [Concomitant]
     Active Substance: ALENDRONATE SODIUM
     Dosage: 35 MILLIGRAM, 1/WEEK
     Route: 065
  4. MYONAL                             /01071502/ [Concomitant]
     Dosage: 50 MILLIGRAM
     Route: 065
  5. EDIROL [Concomitant]
     Active Substance: ELDECALCITOL
     Dosage: 1 DOSAGE FORM, QD
     Route: 065
  6. AMLODIPINE BESILATE W/CANDESARTAN CILEXETIL [Concomitant]
     Dosage: 1 DOSAGE FORM, QD
     Route: 065
  7. TORASEMIDE [Concomitant]
     Active Substance: TORSEMIDE
     Dosage: 4 MILLIGRAM, QD
     Route: 065
  8. ROZEREM [Suspect]
     Active Substance: RAMELTEON
     Indication: INSOMNIA
     Dosage: 8 MILLIGRAM, QD
     Route: 048
     Dates: start: 20190711, end: 20190715
  9. CALONAL [Concomitant]
     Active Substance: ACETAMINOPHEN
     Dosage: 400 MILLIGRAM
     Route: 065
  10. FERROUS CITRATE NA [Concomitant]
     Active Substance: SODIUM FERROUS CITRATE
     Dosage: UNK UNK, BID
     Route: 065

REACTIONS (3)
  - Renal impairment [Unknown]
  - Pruritus [Recovered/Resolved]
  - Rash [Recovered/Resolved]

NARRATIVE: CASE EVENT DATE: 20190712
